FAERS Safety Report 4973077-2 (Version None)
Quarter: 2006Q2

REPORT INFORMATION
  Report Type: 
  Country: None (occurrence: None)
  Receive Date: 20060414
  Receipt Date: 20060405
  Transmission Date: 20061013
  Serious: Yes (Other)
  Sender: FDA-Public Use
  Company Number: CA-ROCHE-443261

PATIENT
  Age: 32 Year
  Sex: Male
  Weight: 93 kg

DRUGS (4)
  1. MEFLOQUINE HCL [Suspect]
     Indication: DRUG USE FOR UNKNOWN INDICATION
     Route: 065
  2. RISPERDAL [Concomitant]
     Route: 065
  3. CIPRALEX [Concomitant]
     Route: 065
  4. CLONAZEPAM [Concomitant]
     Route: 065

REACTIONS (4)
  - ANXIETY [None]
  - DELUSION [None]
  - DEPRESSION [None]
  - PARANOIA [None]
